FAERS Safety Report 10738519 (Version 1)
Quarter: 2015Q1

REPORT INFORMATION
  Report Type: Spontaneous
  Country: US (occurrence: US)
  Receive Date: 20150126
  Receipt Date: 20150126
  Transmission Date: 20150721
  Serious: Yes (Other)
  Sender: FDA-Public Use
  Company Number: US-PFIZER INC-2015031811

PATIENT
  Age: 66 Year
  Sex: Male
  Weight: 112 kg

DRUGS (1)
  1. LYRICA [Suspect]
     Active Substance: PREGABALIN
     Dosage: 50 MG, 2X/DAY
     Route: 048
     Dates: start: 20141216, end: 20141226

REACTIONS (5)
  - Nasopharyngitis [Recovered/Resolved]
  - Conjunctivitis [Recovered/Resolved]
  - Pain in jaw [Recovered/Resolved]
  - Headache [Unknown]
  - Deafness unilateral [Not Recovered/Not Resolved]

NARRATIVE: CASE EVENT DATE: 201412
